FAERS Safety Report 23411429 (Version 1)
Quarter: 2024Q1

REPORT INFORMATION
  Report Type: Spontaneous
  Country: US (occurrence: US)
  Receive Date: 20240117
  Receipt Date: 20240117
  Transmission Date: 20240409
  Serious: Yes (Other)
  Sender: FDA-Public Use
  Company Number: US-PFIZER INC-202400010666

PATIENT
  Age: 53 Year
  Sex: Female
  Weight: 48.08 kg

DRUGS (2)
  1. DOXYCYCLINE HYCLATE [Suspect]
     Active Substance: DOXYCYCLINE HYCLATE
     Dosage: UNK
     Dates: start: 2004
  2. MINOCYCLINE [Suspect]
     Active Substance: MINOCYCLINE HYDROCHLORIDE
     Dosage: UNK
     Dates: start: 2004

REACTIONS (4)
  - Tunnel vision [Unknown]
  - Drug hypersensitivity [Unknown]
  - Dizziness [Unknown]
  - Abdominal pain [Unknown]
